FAERS Safety Report 7444350-3 (Version None)
Quarter: 2011Q2

REPORT INFORMATION
  Report Type: 
  Country: None (occurrence: None)
  Receive Date: 20110429
  Receipt Date: 20110415
  Transmission Date: 20111010
  Serious: Yes (Other)
  Sender: FDA-Public Use
  Company Number: US-RANBAXY-2011RR-41929

PATIENT
  Sex: Female

DRUGS (2)
  1. LEVAQUIN [Suspect]
     Indication: PNEUMONIA
     Dosage: UNK
     Route: 048
     Dates: start: 20080301, end: 20080301
  2. CIPROFLOXACIN [Suspect]
     Indication: PNEUMONIA
     Dosage: UNK
     Route: 065
     Dates: start: 20000101, end: 20100101

REACTIONS (3)
  - TENDON RUPTURE [None]
  - PLANTAR FASCIITIS [None]
  - ROTATOR CUFF SYNDROME [None]
